FAERS Safety Report 4696499-6 (Version None)
Quarter: 2005Q2

REPORT INFORMATION
  Report Type: 
  Country: None (occurrence: None)
  Receive Date: 20050621
  Receipt Date: 20050615
  Transmission Date: 20051028
  Serious: Yes (Life-Threatening, Hospitalization, Disabling)
  Sender: FDA-Public Use
  Company Number: US-MERCK-0506USA02296

PATIENT
  Age: 47 Year
  Sex: Female

DRUGS (5)
  1. VIOXX [Suspect]
     Indication: ARTHRITIS
     Route: 048
     Dates: start: 20030101, end: 20040101
  2. ALTACE [Concomitant]
     Route: 065
  3. CRESTOR [Concomitant]
     Route: 065
  4. LORTAB [Concomitant]
     Route: 065
  5. SOMA [Concomitant]
     Route: 065

REACTIONS (7)
  - ASTHENIA [None]
  - CARDIAC VALVE DISEASE [None]
  - INTERVERTEBRAL DISC PROTRUSION [None]
  - MYALGIA [None]
  - RENAL FAILURE [None]
  - VASCULAR OCCLUSION [None]
  - VENTRICULAR HYPERTROPHY [None]
